FAERS Safety Report 7626689 (Version 2)
Quarter: 2015Q3

REPORT INFORMATION
  Report Type: Spontaneous
  Country: US (occurrence: US)
  Receive Date: 20101013
  Receipt Date: 20150708
  Transmission Date: 20151125
  Serious: No
  Sender: FDA-Public Use
  Company Number: US-ASTRAZENECA-2009SE28694

PATIENT
  Age: 71 Year
  Sex: Female
  Weight: 113.4 kg

DRUGS (9)
  1. SYMBICORT [Suspect]
     Active Substance: BUDESONIDE\FORMOTEROL FUMARATE DIHYDRATE
     Indication: CHRONIC OBSTRUCTIVE PULMONARY DISEASE
     Dosage: 160/4.5 BID, TOTAL DAILY DOSE: 640 MCG
     Route: 055
     Dates: start: 20120616
  2. ALBUTEROL. [Concomitant]
     Active Substance: ALBUTEROL
  3. GLYBURIDE. [Concomitant]
     Active Substance: GLYBURIDE
  4. SYMBICORT [Suspect]
     Active Substance: BUDESONIDE\FORMOTEROL FUMARATE DIHYDRATE
     Indication: ASTHMA
     Dosage: 160/4.5 BID, TOTAL DAILY DOSE: 640 MCG
     Route: 055
     Dates: start: 20120616
  5. COUMADIN [Concomitant]
     Active Substance: WARFARIN SODIUM
  6. METFORMIN [Concomitant]
     Active Substance: METFORMIN HYDROCHLORIDE
  7. SPIRIVA [Concomitant]
     Active Substance: TIOTROPIUM BROMIDE MONOHYDRATE
     Indication: CHRONIC OBSTRUCTIVE PULMONARY DISEASE
     Dosage: Q3MO
     Dates: start: 20120616
  8. SOTOLOL [Concomitant]
     Active Substance: SOTALOL
  9. RYTHMAL [Concomitant]

REACTIONS (4)
  - Dysphonia [Unknown]
  - Wheezing [Unknown]
  - Dyspnoea [Unknown]
  - Speech disorder [Unknown]
